FAERS Safety Report 23861826 (Version 2)
Quarter: 2024Q3

REPORT INFORMATION
  Report Type: Report from Study
  Country: IN (occurrence: IN)
  Receive Date: 20240516
  Receipt Date: 20240716
  Transmission Date: 20241017
  Serious: Yes (Death)
  Sender: ROCHE
  Company Number: IN-ROCHE-3562886

PATIENT
  Age: 51 Year
  Sex: Male

DRUGS (1)
  1. TECENTRIQ [Suspect]
     Active Substance: ATEZOLIZUMAB
     Indication: Hepatocellular carcinoma
     Route: 041

REACTIONS (3)
  - Hepatic function abnormal [Fatal]
  - Haematemesis [Fatal]
  - Hypotension [Fatal]
